FAERS Safety Report 7031155-0 (Version None)
Quarter: 2010Q4

REPORT INFORMATION
  Report Type: 
  Country: None (occurrence: None)
  Receive Date: 20101006
  Receipt Date: 20100927
  Transmission Date: 20110411
  Serious: Yes (Death, Other)
  Sender: FDA-Public Use
  Company Number: DK-ABBOTT-10P-044-0621394-00

PATIENT
  Sex: Female

DRUGS (1)
  1. HUMIRA [Suspect]
     Indication: CROHN'S DISEASE
     Dates: start: 20080201, end: 20090914

REACTIONS (4)
  - CROHN'S DISEASE [None]
  - GALLBLADDER CANCER METASTATIC [None]
  - PAIN [None]
  - SMALL INTESTINAL RESECTION [None]
